FAERS Safety Report 6536684-1 (Version None)
Quarter: 2010Q1

REPORT INFORMATION
  Report Type: 
  Country: None (occurrence: None)
  Receive Date: 20100113
  Receipt Date: 20100106
  Transmission Date: 20100710
  Serious: Yes (Other)
  Sender: FDA-Public Use
  Company Number: BR-PFIZER INC-2010002210

PATIENT
  Age: 39 Year
  Sex: Female
  Weight: 49 kg

DRUGS (1)
  1. DEPO-PROVERA [Suspect]
     Indication: CONTRACEPTION
     Dosage: 150 MG, EVERY 3 MONTHS
     Route: 030
     Dates: start: 20040101, end: 20081201

REACTIONS (6)
  - AMENORRHOEA [None]
  - LEIOMYOMA [None]
  - MENORRHAGIA [None]
  - MENSTRUATION IRREGULAR [None]
  - OVARIAN CYST [None]
  - WEIGHT INCREASED [None]
